FAERS Safety Report 20687408 (Version 1)
Quarter: 2022Q2

REPORT INFORMATION
  Report Type: Spontaneous
  Country: DE (occurrence: DE)
  Receive Date: 20220408
  Receipt Date: 20220408
  Transmission Date: 20220720
  Serious: Yes (Hospitalization)
  Sender: FDA-Public Use
  Company Number: DE-DCGMA-21192384

PATIENT
  Age: 48 Year
  Sex: Male
  Weight: 120 kg

DRUGS (2)
  1. CARBAMAZEPINE [Suspect]
     Active Substance: CARBAMAZEPINE
     Dosage: 600MG
     Route: 065
     Dates: start: 202103
  2. MAYZENT [Suspect]
     Active Substance: SIPONIMOD
     Route: 065
     Dates: start: 20210401, end: 20210507

REACTIONS (1)
  - Liver injury [Recovered/Resolved]

NARRATIVE: CASE EVENT DATE: 20210505
